FAERS Safety Report 10953749 (Version 2)
Quarter: 2015Q2

REPORT INFORMATION
  Report Type: Spontaneous
  Country: IT (occurrence: IT)
  Receive Date: 20150325
  Receipt Date: 20150406
  Transmission Date: 20150821
  Serious: Yes (Other)
  Sender: FDA-Public Use
  Company Number: IT-TEVA-549192ACC

PATIENT
  Age: 71 Year
  Sex: Male
  Weight: 76 kg

DRUGS (4)
  1. STALEVO [Suspect]
     Active Substance: CARBIDOPA\ENTACAPONE\LEVODOPA
     Indication: PARKINSON^S DISEASE
     Dosage: 3 DOSAGE FORMS DAILY; 3 DF DAILY
     Route: 048
     Dates: start: 20150220, end: 20150222
  2. SEROQUEL [Concomitant]
     Active Substance: QUETIAPINE FUMARATE
     Indication: PARKINSON^S DISEASE
     Dosage: 1 DF
     Route: 048
     Dates: start: 20050201, end: 20150222
  3. AZILECT [Suspect]
     Active Substance: RASAGILINE MESYLATE
     Indication: PARKINSON^S DISEASE
     Dosage: 1 DOSAGE FORMS DAILY; 1 DF DAILY
     Route: 048
     Dates: start: 20150220, end: 20150222
  4. SINEMET - 200 MG + 50 MG COMPRESSE A RILASCIO MODIFICATO [Concomitant]
     Indication: PARKINSON^S DISEASE
     Dosage: 2 DF
     Route: 048
     Dates: start: 20050201, end: 20150222

REACTIONS (1)
  - Akinesia [Recovered/Resolved]

NARRATIVE: CASE EVENT DATE: 20150222
